FAERS Safety Report 23153711 (Version 1)
Quarter: 2023Q4

REPORT INFORMATION
  Report Type: Spontaneous
  Country: KR (occurrence: None)
  Receive Date: 20231107
  Receipt Date: 20231107
  Transmission Date: 20240110
  Serious: Yes (Other)
  Sender: FDA-Public Use
  Company Number: 2023A247847

PATIENT
  Age: 64 Year
  Sex: Male
  Weight: 70 kg

DRUGS (11)
  1. XIGDUO XR [Suspect]
     Active Substance: DAPAGLIFLOZIN PROPANEDIOL\METFORMIN HYDROCHLORIDE
     Route: 048
     Dates: start: 20210102
  2. GLICLAZIDE [Suspect]
     Active Substance: GLICLAZIDE
     Dates: start: 20210102
  3. BENFOTIAMINE\CYANOCOBALAMIN\PYRIDOXINE HYDROCHLORIDE [Suspect]
     Active Substance: BENFOTIAMINE\CYANOCOBALAMIN\PYRIDOXINE HYDROCHLORIDE
     Dates: start: 20210102
  4. PREGABALIN [Suspect]
     Active Substance: PREGABALIN
     Dates: start: 20210102
  5. THIOCTIC ACID [Suspect]
     Active Substance: THIOCTIC ACID
     Dates: start: 20210102
  6. ACETAMINOPHEN\TRAMADOL HYDROCHLORIDE [Suspect]
     Active Substance: ACETAMINOPHEN\TRAMADOL HYDROCHLORIDE
     Dates: start: 20210102
  7. METFORMIN HYDROCHLORIDE [Suspect]
     Active Substance: METFORMIN HYDROCHLORIDE
     Dates: start: 20210102
  8. ROPINIROLE HYDROCHLORIDE [Suspect]
     Active Substance: ROPINIROLE HYDROCHLORIDE
     Dates: start: 20210102
  9. AMITRIPTYLINE HYDROCHLORIDE [Suspect]
     Active Substance: AMITRIPTYLINE HYDROCHLORIDE
     Dosage: 1 DOSAGE FORM
     Dates: start: 20210102
  10. FENOFIBRATE\PITAVASTATIN CALCIUM [Suspect]
     Active Substance: FENOFIBRATE\PITAVASTATIN CALCIUM
     Dates: start: 20210102
  11. SARPOGRELATE HYDROCHLORIDE [Suspect]
     Active Substance: SARPOGRELATE HYDROCHLORIDE
     Dates: start: 20210102

REACTIONS (2)
  - Blindness transient [Recovered/Resolved]
  - Nausea [Recovered/Resolved]

NARRATIVE: CASE EVENT DATE: 20210102
